FAERS Safety Report 4898753-1 (Version None)
Quarter: 2006Q1

REPORT INFORMATION
  Report Type: 
  Country: None (occurrence: None)
  Receive Date: 20060131
  Receipt Date: 20060117
  Transmission Date: 20060701
  Serious: Yes (Death)
  Sender: FDA-Public Use
  Company Number: 2006BH000894

PATIENT
  Age: 71 Year
  Sex: Female

DRUGS (2)
  1. BUPIVACAINE HYDROCHLORIDE [Suspect]
     Indication: PAIN MANAGEMENT
     Dosage: 0.1 PCT;
     Dates: start: 20060110
  2. HYDROMORPHONE HCL [Suspect]
     Indication: PAIN MANAGEMENT
     Dosage: 20 PCT;
     Dates: start: 20060110

REACTIONS (3)
  - ACCIDENTAL OVERDOSE [None]
  - ANAESTHETIC COMPLICATION [None]
  - CARDIO-RESPIRATORY ARREST [None]
